FAERS Safety Report 5314676-8 (Version None)
Quarter: 2007Q2

REPORT INFORMATION
  Report Type: 
  Country: None (occurrence: None)
  Receive Date: 20070426
  Receipt Date: 20070413
  Transmission Date: 20071010
  Serious: Yes (Other)
  Sender: FDA-Public Use
  Company Number: SPV1-2007-02125

PATIENT
  Age: 9 Year
  Sex: Male
  Weight: 45.4 kg

DRUGS (5)
  1. DAYTRANA [Suspect]
     Indication: ANXIETY
     Dosage: 10MG, TRANSDERMAL
     Route: 062
     Dates: start: 20060101, end: 20070101
  2. DAYTRANA [Suspect]
     Indication: ATTENTION DEFICIT/HYPERACTIVITY DISORDER
     Dosage: 10MG, TRANSDERMAL
     Route: 062
     Dates: start: 20060101, end: 20070101
  3. DAYTRANA [Suspect]
     Indication: ANXIETY
     Dosage: 10MG, TRANSDERMAL
     Route: 062
     Dates: start: 20070326, end: 20070413
  4. DAYTRANA [Suspect]
     Indication: ATTENTION DEFICIT/HYPERACTIVITY DISORDER
     Dosage: 10MG, TRANSDERMAL
     Route: 062
     Dates: start: 20070326, end: 20070413
  5. PROAIR (FLUTICASONE PROPIONATE) [Concomitant]

REACTIONS (8)
  - ANOREXIA [None]
  - BODY TEMPERATURE DECREASED [None]
  - FEELING COLD [None]
  - HAEMATEMESIS [None]
  - INAPPROPRIATE SCHEDULE OF DRUG ADMINISTRATION [None]
  - PALLOR [None]
  - VOMITING [None]
  - WEIGHT DECREASED [None]
